FAERS Safety Report 9344208 (Version 2)
Quarter: 2013Q3

REPORT INFORMATION
  Report Type: Spontaneous
  Country: BR (occurrence: BR)
  Receive Date: 20130612
  Receipt Date: 20130711
  Transmission Date: 20140515
  Serious: Yes (Death, Other)
  Sender: FDA-Public Use
  Company Number: BR-PFIZER INC-2013175265

PATIENT
  Age: 93 Year
  Sex: Female
  Weight: 38 kg

DRUGS (4)
  1. EFEXOR XR [Suspect]
     Indication: ANXIETY
     Dosage: 75 MG DAILY
     Route: 048
     Dates: start: 20120907
  2. HEIMER [Concomitant]
     Indication: MEMORY IMPAIRMENT
     Dosage: 10MG DAILY
  3. NEOZINE [Concomitant]
     Dosage: 6 DROPS, 3X/DAY
  4. RISPERIDONE [Concomitant]
     Dosage: 4 MG, 2X/DAY

REACTIONS (2)
  - Aortic thrombosis [Fatal]
  - Dementia [Unknown]
